FAERS Safety Report 11428847 (Version 1)
Quarter: 2015Q3

REPORT INFORMATION
  Report Type: Spontaneous
  Country: US (occurrence: None)
  Receive Date: 20150827
  Receipt Date: 20150827
  Transmission Date: 20151125
  Serious: Yes (Life-Threatening)
  Sender: FDA-Public Use
  Company Number: None

PATIENT
  Age: 59 Year
  Sex: Female
  Weight: 83.92 kg

DRUGS (3)
  1. LISINOPRIL. [Suspect]
     Active Substance: LISINOPRIL
     Indication: HYPERTENSION
     Route: 048
  2. LIPTON GREEN TEA [Concomitant]
  3. FLAX SEED [Concomitant]
     Active Substance: FLAX SEED

REACTIONS (4)
  - Swelling face [None]
  - Swollen tongue [None]
  - Lip swelling [None]
  - Anaphylactic shock [None]

NARRATIVE: CASE EVENT DATE: 20150731
